FAERS Safety Report 5104016-1 (Version None)
Quarter: 2006Q3

REPORT INFORMATION
  Report Type: 
  Country: None (occurrence: None)
  Receive Date: 20060908
  Receipt Date: 20060830
  Transmission Date: 20061208
  Serious: Yes (Other)
  Sender: FDA-Public Use
  Company Number: 2006105651

PATIENT
  Age: 43 Year
  Sex: Male
  Weight: 83.0083 kg

DRUGS (9)
  1. CHANTIX [Suspect]
     Indication: SMOKING CESSATION THERAPY
     Dates: start: 20060801, end: 20060801
  2. PROCARDIA [Concomitant]
  3. XANAX [Concomitant]
  4. EFFEXOR [Concomitant]
  5. PREVACID [Concomitant]
  6. ASPIRIN [Concomitant]
  7. IMDUR [Concomitant]
  8. ADVAIR DISKUS (FLUTICASONE PROPIONATE, SALMETEROL XINAFOATE) [Concomitant]
  9. ALBUTEROL [Concomitant]

REACTIONS (2)
  - FATIGUE [None]
  - THINKING ABNORMAL [None]
